FAERS Safety Report 7823640-6 (Version None)
Quarter: 2011Q4

REPORT INFORMATION
  Report Type: 
  Country: None (occurrence: None)
  Receive Date: 20111019
  Receipt Date: 20111019
  Transmission Date: 20120403
  Serious: No
  Sender: FDA-Public Use
  Company Number: None

PATIENT
  Sex: Male
  Weight: 90.718 kg

DRUGS (2)
  1. PRECAST ACTIN [Concomitant]
     Indication: BLOOD TRIGLYCERIDES INCREASED
     Dosage: 1 TABLET
     Route: 048
     Dates: start: 20110520, end: 20110828
  2. LIPITOR [Suspect]
     Indication: BLOOD CHOLESTEROL INCREASED
     Dosage: 1 TABLET
     Route: 048
     Dates: start: 20110829, end: 20111018

REACTIONS (2)
  - MYALGIA [None]
  - ARTHRALGIA [None]
